FAERS Safety Report 4589531-1 (Version None)
Quarter: 2005Q1

REPORT INFORMATION
  Report Type: 
  Country: None (occurrence: None)
  Receive Date: 20050223
  Receipt Date: 20050216
  Transmission Date: 20050727
  Serious: Yes (Death, Hospitalization)
  Sender: FDA-Public Use
  Company Number: US-JNJFOC-20050200692

PATIENT
  Sex: Female

DRUGS (4)
  1. DURAGESIC-100 [Suspect]
     Route: 062
     Dates: end: 20040101
  2. DURAGESIC-100 [Suspect]
     Route: 062
     Dates: end: 20040101
  3. PERCOCET [Concomitant]
  4. PERCOCET [Concomitant]
     Indication: PAIN

REACTIONS (1)
  - DEATH [None]
